FAERS Safety Report 4424524-6 (Version None)
Quarter: 2004Q3

REPORT INFORMATION
  Report Type: 
  Country: None (occurrence: None)
  Receive Date: 20040812
  Receipt Date: 20040805
  Transmission Date: 20050211
  Serious: Yes (Hospitalization)
  Sender: FDA-Public Use
  Company Number: IT-ROCHE-376695

PATIENT
  Age: 90 Year
  Sex: Female

DRUGS (5)
  1. VALIUM [Suspect]
     Route: 048
     Dates: start: 20040613, end: 20040713
  2. TORVAST [Concomitant]
     Route: 048
     Dates: start: 20040613, end: 20040713
  3. CARDIOASPIRIN [Concomitant]
     Route: 048
     Dates: start: 20040613, end: 20040713
  4. OMEPRAZOLE [Concomitant]
     Route: 048
     Dates: start: 20040613, end: 20040713
  5. LASIX [Concomitant]
     Route: 048
     Dates: start: 20040613, end: 20040713

REACTIONS (1)
  - COMA [None]
